FAERS Safety Report 10279613 (Version 2)
Quarter: 2014Q3

REPORT INFORMATION
  Report Type: Spontaneous
  Country: CH (occurrence: None)
  Receive Date: 20140702
  Receipt Date: 20140922
  Transmission Date: 20150326
  Serious: Yes (Other)
  Sender: FDA-Public Use
  Company Number: 20140384

PATIENT
  Age: 72 Year
  Sex: Female

DRUGS (10)
  1. LASILIX (FUROGEMIDE) [Concomitant]
  2. FERINJECT [Suspect]
     Active Substance: FERRIC CARBOXYMALTOSE
     Indication: PRODUCT USED FOR UNKNOWN INDICATION
     Dosage: 1 IN TOTAL
     Dates: start: 20140327, end: 20140327
  3. LEVOTHYROX (LEVOTHYROXINE SODIUM) [Concomitant]
     Active Substance: LEVOTHYROXINE SODIUM
  4. PREVISCAN (FLUINDIONE) [Concomitant]
     Active Substance: FLUINDIONE
  5. FERINJECT [Suspect]
     Active Substance: FERRIC CARBOXYMALTOSE
     Indication: RECTAL HAEMORRHAGE
     Dosage: 1 IN TOTAL
     Dates: start: 20140327, end: 20140327
  6. FLECAINE (FLECAINIDE ACETATE) [Concomitant]
  7. TIORFAN (ACETOPHRIN, RACECADOTRIL) [Concomitant]
  8. FERINJECT [Suspect]
     Active Substance: FERRIC CARBOXYMALTOSE
     Indication: ANAEMIA
     Dosage: 1 IN TOTAL
     Dates: start: 20140327, end: 20140327
  9. IMOVANE [Concomitant]
     Active Substance: ZOPICLONE
  10. QUESTRAN (CHOLESTYRAMINE) [Concomitant]

REACTIONS (2)
  - Supraventricular tachycardia [None]
  - Bundle branch block [None]

NARRATIVE: CASE EVENT DATE: 20140327
